FAERS Safety Report 9160272 (Version 1)
Quarter: 2013Q1

REPORT INFORMATION
  Report Type: Spontaneous
  Country: PE (occurrence: PE)
  Receive Date: 20130313
  Receipt Date: 20130313
  Transmission Date: 20140127
  Serious: Yes (Death)
  Sender: FDA-Public Use
  Company Number: PE-ELI_LILLY_AND_COMPANY-PE201303001524

PATIENT
  Age: 37 Year
  Sex: Male

DRUGS (1)
  1. ZYPREXA [Suspect]
     Indication: RESTLESSNESS
     Dosage: 10 MG, UNK
     Route: 030
     Dates: start: 201302

REACTIONS (2)
  - Death [Fatal]
  - Off label use [Unknown]
